FAERS Safety Report 25981381 (Version 1)
Quarter: 2025Q4

REPORT INFORMATION
  Report Type: Spontaneous
  Country: EU (occurrence: EU)
  Receive Date: 20251030
  Receipt Date: 20251030
  Transmission Date: 20260118
  Serious: Yes (Other)
  Sender: VERTEX
  Company Number: None

PATIENT
  Age: 14 Year
  Sex: Female
  Weight: 55 kg

DRUGS (3)
  1. KALYDECO [Suspect]
     Active Substance: IVACAFTOR
     Indication: Cystic fibrosis
     Dosage: 150 MG, BID
     Route: 048
     Dates: start: 20240424, end: 20251008
  2. Pankreal [Concomitant]
     Indication: Cystic fibrosis
     Route: 048
     Dates: start: 2021
  3. PULMOZYME [Concomitant]
     Active Substance: DORNASE ALFA
     Indication: Cystic fibrosis
     Dosage: 2500 U/ 2.5 ML, INHALATION SOLUTION, ONCE DAILY, AEROSOLS
     Dates: start: 2021

REACTIONS (1)
  - Hepatic cytolysis [Recovering/Resolving]

NARRATIVE: CASE EVENT DATE: 20251003
